FAERS Safety Report 5225417-7 (Version None)
Quarter: 2007Q1

REPORT INFORMATION
  Report Type: 
  Country: None (occurrence: None)
  Receive Date: 20070131
  Receipt Date: 20070125
  Transmission Date: 20070707
  Serious: Yes (Hospitalization, Other)
  Sender: FDA-Public Use
  Company Number: US-PFIZER INC-2006069312

PATIENT
  Sex: Female
  Weight: 146.5 kg

DRUGS (3)
  1. CELEBREX [Suspect]
     Indication: BACK PAIN
     Dates: start: 20010103, end: 20021207
  2. BEXTRA [Suspect]
     Indication: BACK PAIN
  3. VIOXX [Suspect]
     Route: 048
     Dates: start: 20010801, end: 20020718

REACTIONS (2)
  - DEEP VEIN THROMBOSIS [None]
  - PULMONARY EMBOLISM [None]
